FAERS Safety Report 20310076 (Version 15)
Quarter: 2024Q4

REPORT INFORMATION
  Report Type: Spontaneous
  Country: US (occurrence: US)
  Receive Date: 20220107
  Receipt Date: 20241205
  Transmission Date: 20250114
  Serious: Yes (Other)
  Sender: PFIZER
  Company Number: US-PFIZER INC-2018309363

PATIENT
  Age: 71 Year
  Sex: Female

DRUGS (3)
  1. PREMARIN [Suspect]
     Active Substance: ESTROGENS, CONJUGATED
     Dosage: UNK
  2. PREMARIN [Suspect]
     Active Substance: ESTROGENS, CONJUGATED
     Dosage: 1 G, 1X/DAY (QHS X 2 WKS)
     Route: 067
  3. PREMARIN [Suspect]
     Active Substance: ESTROGENS, CONJUGATED
     Dosage: 1 G, 2X/WEEK

REACTIONS (14)
  - Brain operation [Unknown]
  - Off label use [Unknown]
  - Product use issue [Unknown]
  - Product dispensing error [Unknown]
  - Product selection error [Unknown]
  - Illness [Unknown]
  - Back disorder [Unknown]
  - Gait disturbance [Unknown]
  - Pain [Unknown]
  - Memory impairment [Unknown]
  - Neoplasm [Unknown]
  - Feeling abnormal [Unknown]
  - Malaise [Unknown]
  - Irritability [Unknown]

NARRATIVE: CASE EVENT DATE: 20220211
